FAERS Safety Report 15542517 (Version 2)
Quarter: 2019Q1

REPORT INFORMATION
  Report Type: Spontaneous
  Country: FR (occurrence: FR)
  Receive Date: 20181023
  Receipt Date: 20190109
  Transmission Date: 20190417
  Serious: Yes (Other)
  Sender: FDA-Public Use
  Company Number: FR-PFIZER INC-2018420120

PATIENT
  Sex: Female

DRUGS (2)
  1. IBRANCE [Suspect]
     Active Substance: PALBOCICLIB
     Indication: BREAST CANCER METASTATIC
     Dosage: UNK
     Dates: start: 201803
  2. IOMERON [Interacting]
     Active Substance: IOMEPROL
     Indication: SCAN
     Dosage: UNK

REACTIONS (4)
  - Respiratory arrest [Unknown]
  - Neoplasm progression [Unknown]
  - Anaphylactic shock [Unknown]
  - Drug interaction [Unknown]

NARRATIVE: CASE EVENT DATE: 20180912
